FAERS Safety Report 12974350 (Version 1)
Quarter: 2016Q4

REPORT INFORMATION
  Report Type: Report from Study
  Country: US (occurrence: US)
  Receive Date: 20161125
  Receipt Date: 20161125
  Transmission Date: 20170207
  Serious: No
  Sender: FDA-Public Use
  Company Number: US-AMGEN-USASL2016165965

PATIENT
  Age: 65 Year
  Sex: Female

DRUGS (3)
  1. ENBREL [Suspect]
     Active Substance: ETANERCEPT
     Indication: PSORIASIS
  2. CELEBREX [Concomitant]
     Active Substance: CELECOXIB
     Dosage: UNK
  3. ENBREL [Suspect]
     Active Substance: ETANERCEPT
     Indication: RHEUMATOID ARTHRITIS
     Dosage: 50 MG, QWK
     Route: 065
     Dates: start: 2015

REACTIONS (10)
  - Fibromyalgia [Unknown]
  - Peripheral swelling [Unknown]
  - Osteoarthritis [Unknown]
  - Back pain [Unknown]
  - Injection site mass [Unknown]
  - Osteoporosis [Unknown]
  - Depression [Unknown]
  - Psoriasis [Unknown]
  - Injection site pain [Unknown]
  - Musculoskeletal pain [Unknown]
